FAERS Safety Report 18480848 (Version 1)
Quarter: 2020Q4

REPORT INFORMATION
  Report Type: Spontaneous
  Country: US (occurrence: US)
  Receive Date: 20201109
  Receipt Date: 20201109
  Transmission Date: 20210114
  Serious: Yes (Death)
  Sender: FDA-Public Use
  Company Number: None

PATIENT
  Age: 76 Year
  Sex: Female
  Weight: 52.56 kg

DRUGS (10)
  1. MEGACE ES [Concomitant]
     Active Substance: MEGESTROL ACETATE
  2. ATIVAN [Concomitant]
     Active Substance: LORAZEPAM
  3. CALCIUM CITRATE + VITAMIN D3 [Concomitant]
  4. FISH OIL [Concomitant]
     Active Substance: FISH OIL
  5. VITAMIN B COMPLEX [Concomitant]
     Active Substance: CYANOCOBALAMIN\DEXPANTHENOL\NIACINAMIDE\PYRIDOXINE HYDROCHLORIDE\RIBOFLAVIN 5^-PHOSPHATE SODIUM\THIAMINE HYDROCHLORIDE\VITAMIN B COMPLEX
  6. POTASSIUM CHLORIDE ER [Concomitant]
     Active Substance: POTASSIUM CHLORIDE
  7. CAPECITABINE. [Suspect]
     Active Substance: CAPECITABINE
     Indication: COLON CANCER
     Dosage: ?          OTHER FREQUENCY:BID FOR 14/21 DAYS;?
     Route: 048
     Dates: start: 20200810, end: 20201106
  8. KEYTRUDA [Concomitant]
     Active Substance: PEMBROLIZUMAB
  9. MIRTAZEPINE [Concomitant]
     Active Substance: MIRTAZAPINE
  10. VITAMIN D2 [Concomitant]
     Active Substance: ERGOCALCIFEROL

REACTIONS (1)
  - Death [None]

NARRATIVE: CASE EVENT DATE: 20201106
